FAERS Safety Report 18821891 (Version 1)
Quarter: 2021Q1

REPORT INFORMATION
  Report Type: Spontaneous
  Country: US (occurrence: US)
  Receive Date: 20210201
  Receipt Date: 20210201
  Transmission Date: 20210419
  Serious: Yes (Death, Other)
  Sender: FDA-Public Use
  Company Number: None

PATIENT
  Age: 63 Year
  Sex: Male

DRUGS (3)
  1. CHLORHEXIDINE GLUCONATE ORAL RINSE, 0.12% [Suspect]
     Active Substance: CHLORHEXIDINE GLUCONATE
     Indication: PROPHYLAXIS
     Dates: start: 20200903, end: 20201021
  2. CHLORHEXIDINE GLUCONATE ORAL RINSE, 0.12% [Suspect]
     Active Substance: CHLORHEXIDINE GLUCONATE
     Indication: PNEUMONIA
     Dates: start: 20200903, end: 20201021
  3. CHLORHEXIDINE GLUCONATE ORAL RINSE [Suspect]
     Active Substance: CHLORHEXIDINE GLUCONATE
     Dosage: SWISH AND SPIT
     Dates: start: 20201109, end: 20201117

REACTIONS (13)
  - Dyspnoea [None]
  - Product quality issue [None]
  - Citrobacter test positive [None]
  - Echocardiogram abnormal [None]
  - Pulmonary embolism [None]
  - Burkholderia test positive [None]
  - Sputum culture positive [None]
  - Staphylococcus test positive [None]
  - Klebsiella test positive [None]
  - Pleural effusion [None]
  - Atrial thrombosis [None]
  - Pulmonary artery thrombosis [None]
  - Cardiac failure [None]

NARRATIVE: CASE EVENT DATE: 20201018
